FAERS Safety Report 8414647-9 (Version None)
Quarter: 2012Q2

REPORT INFORMATION
  Report Type: 
  Country: None (occurrence: None)
  Receive Date: 20120605
  Receipt Date: 20120531
  Transmission Date: 20120825
  Serious: Yes (Other)
  Sender: FDA-Public Use
  Company Number: FR-PFIZER INC-2012130739

PATIENT
  Age: 43 Year
  Sex: Female

DRUGS (3)
  1. ESOMEPRAZOLE [Concomitant]
     Dosage: UNK
     Dates: start: 20120426
  2. CELEBREX [Suspect]
     Dosage: 1 DF, 1X/DAY
     Route: 048
     Dates: start: 20120426
  3. ACETAMINOPHEN W/ CODEINE [Concomitant]

REACTIONS (5)
  - ABDOMINAL PAIN [None]
  - DIARRHOEA [None]
  - MALAISE [None]
  - FAECES DISCOLOURED [None]
  - VOMITING [None]
